FAERS Safety Report 5619541-4 (Version None)
Quarter: 2008Q1

REPORT INFORMATION
  Report Type: 
  Country: None (occurrence: None)
  Receive Date: 20080204
  Receipt Date: 20080204
  Transmission Date: 20080703
  Serious: Yes (Life-Threatening, Hospitalization)
  Sender: FDA-Public Use
  Company Number: None

PATIENT
  Age: 53 Year
  Sex: Male
  Weight: 100 kg

DRUGS (2)
  1. ZOMETA [Suspect]
     Indication: OSTEOPOROSIS
     Dosage: 4MG Q 90 DAYS IV
     Route: 042
     Dates: start: 20071024
  2. ZOMETA [Suspect]
     Indication: OSTEOPOROSIS
     Dosage: 4MG Q 90 DAYS IV
     Route: 042
     Dates: start: 20080125

REACTIONS (6)
  - ATELECTASIS [None]
  - FEBRILE NEUTROPENIA [None]
  - HYDROCELE [None]
  - INFECTION [None]
  - SCROTAL ABSCESS [None]
  - WOUND [None]
